FAERS Safety Report 7920587-1 (Version None)
Quarter: 2011Q4

REPORT INFORMATION
  Report Type: 
  Country: None (occurrence: None)
  Receive Date: 20111117
  Receipt Date: 20111113
  Transmission Date: 20120403
  Serious: Yes (Death, Other)
  Sender: FDA-Public Use
  Company Number: PHHY2011TR64944

PATIENT
  Age: 20 Year
  Sex: Male

DRUGS (1)
  1. EXJADE [Suspect]
     Indication: THALASSAEMIA BETA
     Dates: start: 20100101, end: 20110712

REACTIONS (2)
  - DEATH [None]
  - RECTAL CANCER [None]
